FAERS Safety Report 11244061 (Version 1)
Quarter: 2015Q3

REPORT INFORMATION
  Report Type: Spontaneous
  Country: US (occurrence: US)
  Receive Date: 20150707
  Receipt Date: 20150707
  Transmission Date: 20151125
  Serious: No
  Sender: FDA-Public Use
  Company Number: US-PFIZER INC-2015219424

PATIENT
  Age: 93 Year
  Sex: Male
  Weight: 86 kg

DRUGS (1)
  1. ADVIL PM [Suspect]
     Active Substance: DIPHENHYDRAMINE CITRATE\IBUPROFEN
     Indication: SLEEP APNOEA SYNDROME
     Dosage: 2 DF, 1X/DAY AT NIGHT
     Route: 048
     Dates: start: 20150628

REACTIONS (3)
  - Dizziness [Unknown]
  - Intentional product misuse [Unknown]
  - Hypersomnia [Unknown]
